FAERS Safety Report 20170028 (Version 1)
Quarter: 2021Q4

REPORT INFORMATION
  Report Type: Spontaneous
  Country: IT (occurrence: IT)
  Receive Date: 20211210
  Receipt Date: 20211210
  Transmission Date: 20220303
  Serious: Yes (Other)
  Sender: FDA-Public Use
  Company Number: IT-GLAXOSMITHKLINE-US2021GSK247812

PATIENT
  Age: 69 Year
  Sex: Female

DRUGS (14)
  1. BLENREP [Suspect]
     Active Substance: BELANTAMAB MAFODOTIN-BLMF
     Indication: Plasma cell myeloma
     Dosage: 200 MG,2,5 MG/KG EVERY THREE WEEKS
     Dates: start: 202009
  2. BORTEZOMIB [Concomitant]
     Active Substance: BORTEZOMIB
     Indication: Plasma cell myeloma
     Dosage: UNK
     Dates: start: 200908
  3. ADRIAMYCIN [Concomitant]
     Active Substance: DOXORUBICIN HYDROCHLORIDE
     Indication: Plasma cell myeloma
     Dosage: UNK
     Dates: start: 200908
  4. DEXAMETHASONE [Concomitant]
     Active Substance: DEXAMETHASONE
     Indication: Plasma cell myeloma
     Dosage: UNK
     Dates: start: 200908
  5. BORTEZOMIB + CYCLOPHOSPHAMIDE + DEXAMETHASONE [Concomitant]
     Indication: Plasma cell myeloma
     Dosage: UNK
     Dates: start: 201503
  6. DEXAMETHASONE + LENALIDOMIDE [Concomitant]
     Indication: Plasma cell myeloma
     Dosage: UNK
     Dates: start: 201503
  7. CARFILZOMIB [Concomitant]
     Active Substance: CARFILZOMIB
     Indication: Plasma cell myeloma
     Dosage: UNK
     Dates: start: 201705
  8. BORTEZOMIB + DARATUMUMAB + DEXAMETHASONE [Concomitant]
     Indication: Plasma cell myeloma
     Dosage: UNK
  9. DEXAMETHASONE [Concomitant]
     Active Substance: DEXAMETHASONE
     Indication: Plasma cell myeloma
     Dosage: UNK
     Dates: start: 201903
  10. CYCLOPHOSPHAMIDE [Concomitant]
     Active Substance: CYCLOPHOSPHAMIDE
     Indication: Plasma cell myeloma
     Dosage: UNK
     Dates: start: 201903
  11. ETOPOSIDE [Concomitant]
     Active Substance: ETOPOSIDE
     Indication: Plasma cell myeloma
     Dosage: UNK
     Dates: start: 201903
  12. CISPLATIN [Concomitant]
     Active Substance: CISPLATIN
     Indication: Plasma cell myeloma
     Dosage: UNK
     Dates: start: 201903
  13. DEXAMETHASONE + POMALIDOMIDE [Concomitant]
     Indication: Plasma cell myeloma
     Dosage: UNK
     Dates: start: 201907
  14. DEXAMETHASONE + IXAZOMIB + LENALIDOMIDE [Concomitant]
     Indication: Plasma cell myeloma
     Dosage: UNK
     Dates: start: 202007

REACTIONS (10)
  - Visual impairment [Unknown]
  - Eye pain [Recovered/Resolved]
  - Ocular hyperaemia [Unknown]
  - Foreign body sensation in eyes [Unknown]
  - Photophobia [Recovered/Resolved]
  - Eyelid oedema [Unknown]
  - Corneal leukoma [Recovered/Resolved]
  - Lacrimal disorder [Unknown]
  - Inflammation [Unknown]
  - Discomfort [Unknown]
